FAERS Safety Report 4936772-7 (Version None)
Quarter: 2006Q1

REPORT INFORMATION
  Report Type: 
  Country: None (occurrence: None)
  Receive Date: 20060307
  Receipt Date: 20050908
  Transmission Date: 20060701
  Serious: Yes (Hospitalization, Disabling)
  Sender: FDA-Public Use
  Company Number: AU-MERCK-0509AUS00077

PATIENT
  Age: 51 Year
  Sex: Male
  Weight: 180 kg

DRUGS (3)
  1. VIOXX [Suspect]
     Indication: ARTHRITIS
     Route: 048
     Dates: start: 20010101, end: 20030901
  2. ESOMEPRAZOLE MAGNESIUM [Concomitant]
     Route: 065
     Dates: start: 20030707, end: 20030101
  3. RABEPRAZOLE SODIUM [Concomitant]
     Route: 048
     Dates: start: 20030707

REACTIONS (7)
  - ACUTE MYOCARDIAL INFARCTION [None]
  - ANXIETY [None]
  - EMOTIONAL DISORDER [None]
  - FATIGUE [None]
  - FLANK PAIN [None]
  - MENTAL DISORDER [None]
  - STRESS [None]
